FAERS Safety Report 10166050 (Version 1)
Quarter: 2014Q2

REPORT INFORMATION
  Report Type: Spontaneous
  Country: BR (occurrence: BR)
  Receive Date: 20140512
  Receipt Date: 20140512
  Transmission Date: 20141212
  Serious: Yes (Hospitalization, Other)
  Sender: FDA-Public Use
  Company Number: BR-AMGEN INC.-BRASP2014034075

PATIENT
  Age: 59 Year
  Sex: Male
  Weight: 70 kg

DRUGS (14)
  1. ENBREL [Suspect]
     Indication: RHEUMATOID ARTHRITIS
     Dosage: 50 MG, ONCE A WEEK
     Route: 058
     Dates: start: 201306
  2. RANITIDINE [Concomitant]
     Dosage: UNK
  3. CLOPIDOGREL [Concomitant]
     Dosage: UNK
  4. SIMVASTATIN [Concomitant]
     Dosage: UNK
  5. SELOZOK [Concomitant]
     Dosage: UNK
  6. LASIX                              /00032601/ [Concomitant]
     Dosage: UNK
  7. ENALAPRIL [Concomitant]
     Dosage: UNK
  8. SPIRONOLACTONE [Concomitant]
     Dosage: UNK
  9. AAS [Concomitant]
     Dosage: UNK
  10. ENDOFOLIN [Concomitant]
     Dosage: UNK
  11. TECNOMET                           /00113801/ [Concomitant]
     Dosage: UNK
  12. DICLOFENAC SODIUM [Concomitant]
     Dosage: UNK
  13. PREDNISONE [Concomitant]
     Dosage: UNK
  14. OMEPRAZOLE [Concomitant]
     Dosage: UNK

REACTIONS (1)
  - Infarction [Unknown]
